FAERS Safety Report 16418641 (Version 1)
Quarter: 2019Q2

REPORT INFORMATION
  Report Type: Spontaneous
  Country: JP (occurrence: JP)
  Receive Date: 20190612
  Receipt Date: 20190612
  Transmission Date: 20190711
  Serious: Yes (Other)
  Sender: FDA-Public Use
  Company Number: JP-009507513-1906JPN000440J

PATIENT
  Sex: Male

DRUGS (3)
  1. KEYTRUDA [Suspect]
     Active Substance: PEMBROLIZUMAB
     Indication: NON-SMALL CELL LUNG CANCER
     Dosage: 200 MILLIGRAM, Q3W
     Route: 041
     Dates: start: 201905, end: 201905
  2. CARBOPLATIN. [Suspect]
     Active Substance: CARBOPLATIN
     Dosage: AUC5,Q3W
     Route: 041
     Dates: start: 201905, end: 2019
  3. PEMETREXED DISODIUM [Suspect]
     Active Substance: PEMETREXED DISODIUM
     Dosage: 200 MILLIGRAM, Q3W
     Route: 041
     Dates: start: 201905, end: 2019

REACTIONS (1)
  - Pancytopenia [Unknown]

NARRATIVE: CASE EVENT DATE: 201905
